FAERS Safety Report 7834566-6 (Version None)
Quarter: 2011Q4

REPORT INFORMATION
  Report Type: 
  Country: None (occurrence: None)
  Receive Date: 20111024
  Receipt Date: 20111013
  Transmission Date: 20120403
  Serious: Yes (Hospitalization, Other)
  Sender: FDA-Public Use
  Company Number: US-MERCK-1104USA04144

PATIENT
  Age: 65 Year
  Sex: Female
  Weight: 80 kg

DRUGS (6)
  1. FOSAMAX [Suspect]
     Indication: OSTEOPOROSIS
     Route: 048
     Dates: start: 19971001, end: 20101001
  2. FOSAMAX [Concomitant]
     Route: 048
  3. FOSAMAX [Suspect]
     Route: 048
  4. CALCIUM (UNSPECIFIED) [Concomitant]
     Route: 065
  5. PREMARIN [Concomitant]
     Route: 065
     Dates: start: 19970901
  6. FOSAMAX [Suspect]
     Route: 048

REACTIONS (36)
  - FEMUR FRACTURE [None]
  - COLONIC POLYP [None]
  - GALLBLADDER CHOLESTEROLOSIS [None]
  - HYPERTENSION [None]
  - MELANOSIS COLI [None]
  - SYNCOPE [None]
  - SPINAL OSTEOARTHRITIS [None]
  - LUMBAR SPINAL STENOSIS [None]
  - BURSITIS [None]
  - THYROID DISORDER [None]
  - CARDIOMEGALY [None]
  - BLADDER REPAIR [None]
  - BREAST PAIN [None]
  - INTERVERTEBRAL DISC DISORDER [None]
  - ROTATOR CUFF SYNDROME [None]
  - PALPITATIONS [None]
  - CHOLECYSTITIS CHRONIC [None]
  - TOOTH FRACTURE [None]
  - NEUROPATHY PERIPHERAL [None]
  - CHOLELITHIASIS [None]
  - MALIGNANT MELANOMA [None]
  - LUNG NEOPLASM [None]
  - NEPHROPATHY [None]
  - DIVERTICULUM [None]
  - CORONARY ARTERY DISEASE [None]
  - COLITIS [None]
  - CARPAL TUNNEL SYNDROME [None]
  - CAROTID ARTERY STENOSIS [None]
  - HAEMORRHOIDS [None]
  - PARATHYROID DISORDER [None]
  - OESTROGEN DEFICIENCY [None]
  - MUCOSAL INFLAMMATION [None]
  - DIABETES MELLITUS [None]
  - DIZZINESS [None]
  - TONSILLAR DISORDER [None]
  - CHEST PAIN [None]
